FAERS Safety Report 7781352-1 (Version None)
Quarter: 2011Q3

REPORT INFORMATION
  Report Type: 
  Country: None (occurrence: None)
  Receive Date: 20110927
  Receipt Date: 20110912
  Transmission Date: 20111222
  Serious: Yes (Hospitalization)
  Sender: FDA-Public Use
  Company Number: GB-WATSON-2011-15363

PATIENT
  Age: 8 Year
  Sex: Female

DRUGS (2)
  1. VALPROATE SODIUM [Suspect]
     Dosage: 100 MG, BID
  2. VALPROATE SODIUM [Suspect]
     Indication: CONVULSION
     Dosage: 200 MG, BID

REACTIONS (2)
  - PATHOLOGICAL FRACTURE [None]
  - FANCONI SYNDROME [None]
